FAERS Safety Report 20171530 (Version 1)
Quarter: 2021Q4

REPORT INFORMATION
  Report Type: Report from Study
  Country: BR (occurrence: BR)
  Receive Date: 20211210
  Receipt Date: 20211210
  Transmission Date: 20220303
  Serious: Yes (Other)
  Sender: FDA-Public Use
  Company Number: BR-NOVARTISPH-NVSC2021BR274482

PATIENT
  Age: 29 Year
  Sex: Female

DRUGS (3)
  1. CYCLOSPORINE [Suspect]
     Active Substance: CYCLOSPORINE
     Indication: Urticaria
     Dosage: 100 MG (1.6 MG/KG), QD
     Route: 065
  2. OMALIZUMAB [Suspect]
     Active Substance: OMALIZUMAB
     Indication: Urticaria
     Dosage: 300 MG, EVERY 4 WEEKS
     Route: 058
     Dates: start: 201309
  3. CHLOROQUINE [Suspect]
     Active Substance: CHLOROQUINE
     Indication: Product used for unknown indication
     Dosage: UNK
     Route: 065

REACTIONS (10)
  - Non-Hodgkin^s lymphoma [Recovered/Resolved]
  - Pruritus [Unknown]
  - Oropharyngeal discomfort [Unknown]
  - Pyrexia [Unknown]
  - Lymphadenopathy [Unknown]
  - COVID-19 [Unknown]
  - Rhinorrhoea [Unknown]
  - Weight decreased [Unknown]
  - Urticaria [Recovering/Resolving]
  - Condition aggravated [Unknown]

NARRATIVE: CASE EVENT DATE: 20130901
